FAERS Safety Report 7584305-1 (Version None)
Quarter: 2011Q2

REPORT INFORMATION
  Report Type: 
  Country: None (occurrence: None)
  Receive Date: 20110630
  Receipt Date: 20110624
  Transmission Date: 20111010
  Serious: Yes (Congenital Anomaly)
  Sender: FDA-Public Use
  Company Number: DK-PFIZER INC-2011140838

PATIENT

DRUGS (1)
  1. SERTRALINE HYDROCHLORIDE [Suspect]
     Route: 064

REACTIONS (2)
  - HEART DISEASE CONGENITAL [None]
  - DRUG EXPOSURE DURING PREGNANCY [None]
